FAERS Safety Report 15588199 (Version 8)
Quarter: 2019Q1

REPORT INFORMATION
  Report Type: Report from Study
  Country: US (occurrence: US)
  Receive Date: 20181105
  Receipt Date: 20190208
  Transmission Date: 20190417
  Serious: Yes (Disabling, Other)
  Sender: FDA-Public Use
  Company Number: US-JAZZ-2018-US-008933

PATIENT
  Age: 43 Year
  Sex: Female
  Weight: 86.17 kg

DRUGS (27)
  1. XYREM [Suspect]
     Active Substance: SODIUM OXYBATE
     Dosage: 4.25 G, BID
     Route: 048
     Dates: start: 2018, end: 2018
  2. XYREM [Suspect]
     Active Substance: SODIUM OXYBATE
     Dosage: 2.25 G, BID
     Route: 048
     Dates: start: 2018, end: 2018
  3. PANTOPRAZOLE SODIUM. [Concomitant]
     Active Substance: PANTOPRAZOLE SODIUM
  4. XYREM [Suspect]
     Active Substance: SODIUM OXYBATE
     Dosage: 4.25 G, FIRST NIGHTLY DOSE
     Route: 048
     Dates: start: 2018, end: 2018
  5. XYREM [Suspect]
     Active Substance: SODIUM OXYBATE
     Dosage: 3.35 G, BID
     Route: 048
  6. VENTOLIN HFA [Concomitant]
     Active Substance: ALBUTEROL SULFATE
  7. MISOPROSTOL. [Concomitant]
     Active Substance: MISOPROSTOL
  8. XYREM [Suspect]
     Active Substance: SODIUM OXYBATE
     Dosage: SECOND UNKNOWN DOSE
     Route: 048
     Dates: start: 2018, end: 201806
  9. XYREM [Suspect]
     Active Substance: SODIUM OXYBATE
     Dosage: 4 G, FIRST DOSE
     Route: 048
     Dates: start: 2018
  10. XYREM [Suspect]
     Active Substance: SODIUM OXYBATE
     Dosage: 3.75 G, SECOND DOSE
     Route: 048
     Dates: start: 2018
  11. XYREM [Suspect]
     Active Substance: SODIUM OXYBATE
     Dosage: 3.75
     Route: 048
     Dates: start: 2018, end: 2018
  12. EFFEXOR [Concomitant]
     Active Substance: VENLAFAXINE HYDROCHLORIDE
  13. ALPRAZOLAM. [Concomitant]
     Active Substance: ALPRAZOLAM
  14. XYREM [Suspect]
     Active Substance: SODIUM OXYBATE
     Dosage: 3 G
     Route: 048
     Dates: start: 2018, end: 2018
  15. XYREM [Suspect]
     Active Substance: SODIUM OXYBATE
     Dosage: 3.5 G, BID
     Route: 048
     Dates: start: 20180912, end: 2018
  16. VENLAFAXINE HCL [Concomitant]
     Active Substance: VENLAFAXINE HYDROCHLORIDE
  17. MODAFINIL. [Concomitant]
     Active Substance: MODAFINIL
  18. XYREM [Suspect]
     Active Substance: SODIUM OXYBATE
     Dosage: 3.75 G, BID
     Route: 048
     Dates: start: 201806, end: 2018
  19. XYREM [Suspect]
     Active Substance: SODIUM OXYBATE
     Dosage: 4.5 G, FIRST NIGHTLY DOSE
     Route: 048
     Dates: start: 2018, end: 2018
  20. XYREM [Suspect]
     Active Substance: SODIUM OXYBATE
     Dosage: 3 G, BID
     Route: 048
     Dates: start: 2018, end: 2018
  21. XYREM [Suspect]
     Active Substance: SODIUM OXYBATE
     Dosage: UNK
     Route: 048
  22. XYREM [Suspect]
     Active Substance: SODIUM OXYBATE
     Indication: CATAPLEXY
     Dosage: 4 G, FIRST DOSE
     Route: 048
     Dates: start: 2018, end: 201806
  23. HYDROCODONE BITARTRATE AND ACETAMINOPHEN [Concomitant]
     Active Substance: ACETAMINOPHEN\HYDROCODONE BITARTRATE
  24. MIRENA [Concomitant]
     Active Substance: LEVONORGESTREL
  25. XYREM [Suspect]
     Active Substance: SODIUM OXYBATE
     Indication: NARCOLEPSY
     Dosage: 3 G, BID
     Route: 048
     Dates: start: 20180601, end: 2018
  26. XYREM [Suspect]
     Active Substance: SODIUM OXYBATE
     Dosage: 4.5 G, BID
     Route: 048
     Dates: start: 2018, end: 2018
  27. XYREM [Suspect]
     Active Substance: SODIUM OXYBATE
     Dosage: 3 G, BID
     Route: 048
     Dates: start: 20181005

REACTIONS (27)
  - Confusional state [Recovering/Resolving]
  - Memory impairment [Not Recovered/Not Resolved]
  - Executive dysfunction [Unknown]
  - Muscle twitching [Recovering/Resolving]
  - Treatment noncompliance [Unknown]
  - Nasopharyngitis [Not Recovered/Not Resolved]
  - Arthralgia [Unknown]
  - Nervousness [Unknown]
  - Feeling abnormal [Recovered/Resolved]
  - Headache [Recovering/Resolving]
  - Dizziness [Unknown]
  - Condition aggravated [Recovering/Resolving]
  - Chills [Recovering/Resolving]
  - Paraesthesia [Not Recovered/Not Resolved]
  - Feeling drunk [Unknown]
  - Nausea [Recovered/Resolved]
  - Inappropriate schedule of product administration [Unknown]
  - Vomiting [Recovered/Resolved]
  - Anxiety [Recovered/Resolved]
  - Tremor [Recovering/Resolving]
  - Weight decreased [Recovering/Resolving]
  - Dyskinesia [Recovering/Resolving]
  - Alopecia [Not Recovered/Not Resolved]
  - Attention deficit/hyperactivity disorder [Unknown]
  - Restlessness [Not Recovered/Not Resolved]
  - Muscle spasms [Unknown]
  - Irritability [Recovering/Resolving]

NARRATIVE: CASE EVENT DATE: 2018
